FAERS Safety Report 21966446 (Version 2)
Quarter: 2023Q1

REPORT INFORMATION
  Report Type: Spontaneous
  Country: US (occurrence: US)
  Receive Date: 20230208
  Receipt Date: 20230209
  Transmission Date: 20230417
  Serious: No
  Sender: FDA-Public Use
  Company Number: US-002147023-NVSC2023US026219

PATIENT
  Sex: Female

DRUGS (1)
  1. RECLAST [Suspect]
     Active Substance: ZOLEDRONIC ACID
     Indication: Product used for unknown indication
     Dosage: UNK (FIRST AND LAST ON 01 AUG)
     Route: 065

REACTIONS (3)
  - Limb discomfort [Unknown]
  - Arthropod bite [Unknown]
  - Dyspepsia [Unknown]
